FAERS Safety Report 5939625-0 (Version None)
Quarter: 2008Q4

REPORT INFORMATION
  Report Type: 
  Country: None (occurrence: None)
  Receive Date: 20081030
  Receipt Date: 20081030
  Transmission Date: 20090506
  Serious: No
  Sender: FDA-Public Use
  Company Number: None

PATIENT
  Age: 49 Year
  Sex: Female
  Weight: 96.6162 kg

DRUGS (1)
  1. CIPRO [Suspect]
     Indication: SINUSITIS
     Dosage: 500MG 2X DAILY PO
     Route: 048
     Dates: start: 20081028, end: 20081028

REACTIONS (9)
  - CHEST DISCOMFORT [None]
  - CONFUSIONAL STATE [None]
  - COUGH [None]
  - DISTURBANCE IN ATTENTION [None]
  - DRUG EFFECT DECREASED [None]
  - DYSGEUSIA [None]
  - INITIAL INSOMNIA [None]
  - PARAESTHESIA ORAL [None]
  - THROAT TIGHTNESS [None]
